FAERS Safety Report 21464479 (Version 2)
Quarter: 2022Q4

REPORT INFORMATION
  Report Type: Spontaneous
  Country: US (occurrence: US)
  Receive Date: 20221017
  Receipt Date: 20221109
  Transmission Date: 20230112
  Serious: Yes (Hospitalization, Other)
  Sender: FDA-Public Use
  Company Number: US-BRISTOL-MYERS SQUIBB COMPANY-2022-120272

PATIENT
  Age: 79 Year
  Sex: Female
  Weight: 48.5 kg

DRUGS (1)
  1. REVLIMID [Suspect]
     Active Substance: LENALIDOMIDE
     Indication: Product used for unknown indication
     Dosage: 14D ON 7D OFF
     Route: 048

REACTIONS (3)
  - Off label use [Unknown]
  - Loss of consciousness [Unknown]
  - Diarrhoea [Unknown]
